FAERS Safety Report 9548054 (Version 1)
Quarter: 2013Q3

REPORT INFORMATION
  Report Type: Spontaneous
  Country: US (occurrence: None)
  Receive Date: 20130724
  Receipt Date: 20130724
  Transmission Date: 20140515
  Serious: No
  Sender: FDA-Public Use
  Company Number: AUR-APL-2012-02704

PATIENT
  Sex: Female

DRUGS (2)
  1. ZALEPLON [Suspect]
     Indication: DEPRESSION
  2. EFFEXOR XR (VENLAFAXINE HYDROCHLORIDE) (75 MILLIGRAM, CAPSULE) (VENLAFAXINE HYDROCHLORIDE) [Suspect]

REACTIONS (3)
  - Suicidal ideation [None]
  - Nausea [None]
  - Malaise [None]
